FAERS Safety Report 9660969 (Version 2)
Quarter: 2013Q4

REPORT INFORMATION
  Report Type: Spontaneous
  Country: JP (occurrence: JP)
  Receive Date: 20131031
  Receipt Date: 20131031
  Transmission Date: 20140711
  Serious: Yes (Other)
  Sender: FDA-Public Use
  Company Number: JP-BAYER-2013-110113

PATIENT
  Age: 80 Year
  Sex: Male

DRUGS (8)
  1. BAYASPIRIN [Suspect]
     Dosage: 100 MG, DAILY DOSE
     Route: 048
     Dates: start: 20130820, end: 20130903
  2. CELECOXIB [Suspect]
     Indication: MUSCULOSKELETAL PAIN
     Dosage: 200 MG, DAILY DOSE
     Route: 048
     Dates: start: 201309, end: 20130903
  3. DEPAS [Concomitant]
     Dosage: 1 MG, DAILY DOSE
     Route: 048
  4. HARNAL [Concomitant]
     Dosage: 0.2 MG, DAILY DOSE
     Route: 048
  5. ITOROL [Concomitant]
     Dosage: 40 MG, DAILY DOSE
     Route: 048
     Dates: end: 20130903
  6. ADETPHOS [Concomitant]
     Dosage: UNK
     Route: 048
     Dates: end: 20130903
  7. MAGMITT [Concomitant]
     Dosage: 1500 MG, DAILY DOSE
     Route: 048
  8. INTEBAN [Concomitant]
     Dosage: UNK
     Route: 061
     Dates: end: 20130903

REACTIONS (3)
  - Dermatitis exfoliative [Recovered/Resolved]
  - Erythema [Recovered/Resolved]
  - Skin exfoliation [Recovered/Resolved]
